FAERS Safety Report 22922312 (Version 2)
Quarter: 2024Q3

REPORT INFORMATION
  Report Type: Spontaneous
  Country: US (occurrence: None)
  Receive Date: 20230908
  Receipt Date: 20240906
  Transmission Date: 20241017
  Serious: No
  Sender: DOMPE FARMACEUTICI
  Company Number: US-FARMAPROD-202302-0276

PATIENT
  Sex: Female
  Weight: 29.94 kg

DRUGS (14)
  1. OXERVATE [Suspect]
     Active Substance: CENEGERMIN-BKBJ
     Indication: Neurotrophic keratopathy
     Route: 047
     Dates: start: 20230117, end: 202302
  2. OXERVATE [Suspect]
     Active Substance: CENEGERMIN-BKBJ
  3. JANUVIA [Concomitant]
     Active Substance: SITAGLIPTIN PHOSPHATE
  4. SYSTANE BALANCE [Concomitant]
     Active Substance: PROPYLENE GLYCOL
  5. DIFLUPREDNATE [Concomitant]
     Active Substance: DIFLUPREDNATE
  6. GABAPENTIN [Concomitant]
     Active Substance: GABAPENTIN
  7. PROBIOTICS NOS [Concomitant]
     Active Substance: PROBIOTICS NOS
     Dosage: 10 BILLION CELL
  8. VALACYCLOVIR [Concomitant]
     Active Substance: VALACYCLOVIR HYDROCHLORIDE
  9. LATANOPROST [Concomitant]
     Active Substance: LATANOPROST
  10. LISINOPRIL [Concomitant]
     Active Substance: LISINOPRIL
  11. SERTRALINE HYDROCHLORIDE [Concomitant]
     Active Substance: SERTRALINE HYDROCHLORIDE
  12. FARXIGA [Concomitant]
     Active Substance: DAPAGLIFLOZIN PROPANEDIOL
  13. GLIPIZIDE [Concomitant]
     Active Substance: GLIPIZIDE
  14. NEUROTONIX [Concomitant]

REACTIONS (8)
  - Ocular hyperaemia [Unknown]
  - Eye irritation [Not Recovered/Not Resolved]
  - Vision blurred [Unknown]
  - Eye pruritus [Unknown]
  - Eye discharge [Not Recovered/Not Resolved]
  - Eye pain [Not Recovered/Not Resolved]
  - Eye inflammation [Not Recovered/Not Resolved]
  - Eye swelling [Unknown]
